FAERS Safety Report 9258662 (Version 1)
Quarter: 2013Q2

REPORT INFORMATION
  Report Type: Spontaneous
  Country: US (occurrence: None)
  Receive Date: 20130425
  Receipt Date: 20130425
  Transmission Date: 20140414
  Serious: Yes (Other)
  Sender: FDA-Public Use
  Company Number: None

PATIENT
  Age: 54 Year
  Sex: Female
  Weight: 49.9 kg

DRUGS (1)
  1. DOXEPIN [Suspect]

REACTIONS (8)
  - Anxiety [None]
  - Restlessness [None]
  - Panic attack [None]
  - Irritability [None]
  - Aggression [None]
  - Aggression [None]
  - Mood altered [None]
  - Condition aggravated [None]
